FAERS Safety Report 22335366 (Version 1)
Quarter: 2023Q2

REPORT INFORMATION
  Report Type: Spontaneous
  Country: GB (occurrence: GB)
  Receive Date: 20230518
  Receipt Date: 20230518
  Transmission Date: 20230722
  Serious: Yes (Disabling)
  Sender: FDA-Public Use
  Company Number: GB-MHRA-TPP14118803C4186680YC1682669497242

PATIENT
  Age: 44 Year
  Sex: Female
  Weight: 109 kg

DRUGS (3)
  1. TRAZODONE [Suspect]
     Active Substance: TRAZODONE HYDROCHLORIDE
     Indication: Product used for unknown indication
     Dosage: 100 MILLIGRAM, AT BED TIME
     Route: 065
     Dates: start: 20230428
  2. HALOPERIDOL [Concomitant]
     Active Substance: HALOPERIDOL
     Indication: Ill-defined disorder
     Dosage: UNK,TAKE 0.25ML (0.5MG) EACH MORNING AND 0.5ML (1MG...
     Route: 065
     Dates: start: 20221014
  3. LORAZEPAM [Concomitant]
     Active Substance: LORAZEPAM
     Indication: Ill-defined disorder
     Dosage: UNK,TAKE HALF TO ONE TABLET WHEN NEEDED ONCE A DAY
     Route: 065
     Dates: start: 20221014

REACTIONS (1)
  - Apathy [Recovered/Resolved]

NARRATIVE: CASE EVENT DATE: 20230428
